FAERS Safety Report 17711351 (Version 4)
Quarter: 2021Q3

REPORT INFORMATION
  Report Type: Report from Study
  Country: BR (occurrence: BR)
  Receive Date: 20200427
  Receipt Date: 20210921
  Transmission Date: 20211014
  Serious: Yes (Other)
  Sender: FDA-Public Use
  Company Number: NVSC2020BR097118

PATIENT
  Age: 71 Year
  Sex: Female
  Weight: 66 kg

DRUGS (4)
  1. ENTRESTO [Suspect]
     Active Substance: SACUBITRIL\VALSARTAN
     Indication: CARDIAC FAILURE
     Dosage: 200 MG (97 MG OF SACUBITRIL, 103 MG OF VALSARTAN)
     Route: 048
     Dates: start: 2016
  2. ENTRESTO [Suspect]
     Active Substance: SACUBITRIL\VALSARTAN
     Dosage: 97/103 MG (STARTED 3 YEARS AGO)
     Route: 065
     Dates: end: 20210903
  3. CONCARDIO [Concomitant]
     Active Substance: BISOPROLOL FUMARATE
     Indication: CARDIAC FAILURE
     Dosage: 1 DF, QD (STARTED 3 MONTHS AGO)
     Route: 048
  4. ENTRESTO [Suspect]
     Active Substance: SACUBITRIL\VALSARTAN
     Indication: CARDIAC FAILURE
     Dosage: 2 DF, QD (OVER 2 YEARS AGO AND STOPPED USING THIS FRIDAY)
     Route: 065

REACTIONS (34)
  - Asphyxia [Unknown]
  - Tremor [Unknown]
  - Insomnia [Unknown]
  - Poisoning [Unknown]
  - Pain [Unknown]
  - Oropharyngeal pain [Unknown]
  - Dysstasia [Unknown]
  - Wound [Unknown]
  - Nasal congestion [Unknown]
  - Eating disorder [Unknown]
  - Haematoma [Unknown]
  - Pigmentation disorder [Unknown]
  - Malaise [Recovered/Resolved]
  - General physical health deterioration [Unknown]
  - Parosmia [Unknown]
  - Swelling face [Unknown]
  - Alopecia [Unknown]
  - Peripheral swelling [Recovering/Resolving]
  - Throat tightness [Recovered/Resolved]
  - Deformity [Unknown]
  - Eye colour change [Unknown]
  - Fluid retention [Recovering/Resolving]
  - Localised oedema [Recovering/Resolving]
  - Haemorrhage [Unknown]
  - Rash macular [Unknown]
  - Psoriasis [Not Recovered/Not Resolved]
  - Choking [Unknown]
  - Skin mass [Not Recovered/Not Resolved]
  - Asthenia [Not Recovered/Not Resolved]
  - Pruritus [Not Recovered/Not Resolved]
  - Hypersensitivity [Not Recovered/Not Resolved]
  - Scratch [Unknown]
  - Contusion [Unknown]
  - Drug hypersensitivity [Unknown]

NARRATIVE: CASE EVENT DATE: 20210903
